FAERS Safety Report 5341532-1 (Version None)
Quarter: 2007Q2

REPORT INFORMATION
  Report Type: 
  Country: None (occurrence: None)
  Receive Date: 20070530
  Receipt Date: 20070530
  Transmission Date: 20071010
  Serious: Yes (Life-Threatening, Hospitalization)
  Sender: FDA-Public Use
  Company Number: None

PATIENT
  Age: 78 Year
  Sex: Male
  Weight: 83.1 kg

DRUGS (2)
  1. RAMAPRIL UNKNOWN [Suspect]
     Indication: MYOCARDIAL INFARCTION
  2. FUROSEMIDE [Suspect]
     Indication: MYOCARDIAL INFARCTION

REACTIONS (2)
  - AGRANULOCYTOSIS [None]
  - BONE MARROW TOXICITY [None]
